FAERS Safety Report 4648991-8 (Version None)
Quarter: 2005Q2

REPORT INFORMATION
  Report Type: 
  Country: None (occurrence: None)
  Receive Date: 20050429
  Receipt Date: 20050129
  Transmission Date: 20051028
  Serious: Yes (Other)
  Sender: FDA-Public Use
  Company Number: US-ROCHE-394207

PATIENT
  Age: 46 Year
  Sex: Female

DRUGS (7)
  1. PEGASYS [Suspect]
     Route: 058
     Dates: start: 20050115
  2. COPEGUS [Suspect]
     Dosage: DOSAGE REGIMEN REPORTED AS: 2BID (2 TWICE DAILY)
     Route: 048
     Dates: start: 20050115
  3. ALTACE [Concomitant]
     Dosage: DOSAGE REGIMEN: 1QD
     Route: 048
     Dates: start: 20040715
  4. WELLBUTRIN XL [Concomitant]
     Indication: DEPRESSION
     Dosage: DOSAGE REGIMEN: 1QD
     Route: 048
     Dates: start: 20040615
  5. PAXIL CR [Concomitant]
     Indication: DEPRESSION
     Dosage: DOSAGE REGIMEN: 1QD
     Route: 048
     Dates: start: 20040615
  6. ACIPHEX [Concomitant]
  7. ANTIHYPERTENSIVE MEDICATION NOS [Concomitant]

REACTIONS (20)
  - ABDOMINAL PAIN UPPER [None]
  - ANAEMIA [None]
  - ASTHENIA [None]
  - BLOOD PRESSURE INCREASED [None]
  - CONTUSION [None]
  - DEPRESSION [None]
  - DIZZINESS [None]
  - DYSPNOEA [None]
  - DYSPNOEA EXERTIONAL [None]
  - EPISTAXIS [None]
  - FATIGUE [None]
  - HAEMOGLOBIN DECREASED [None]
  - HEADACHE [None]
  - HEART RATE INCREASED [None]
  - HYPERSOMNIA [None]
  - MUSCULOSKELETAL STIFFNESS [None]
  - NAUSEA [None]
  - SINUSITIS [None]
  - TINNITUS [None]
  - VOMITING [None]
